FAERS Safety Report 26109223 (Version 1)
Quarter: 2025Q4

REPORT INFORMATION
  Report Type: Spontaneous
  Country: US (occurrence: None)
  Receive Date: 20251126
  Receipt Date: 20251126
  Transmission Date: 20260117
  Serious: Yes (Hospitalization)
  Sender: FDA-CTU
  Company Number: None

PATIENT
  Sex: Female

DRUGS (1)
  1. LENALIDOMIDE [Suspect]
     Active Substance: LENALIDOMIDE
     Indication: Plasma cell myeloma
     Dosage: 25 MG ORAL  ??OTHER FREQUENCY : SEE EVENT;?
     Route: 048
     Dates: start: 20250527

REACTIONS (5)
  - Tinnitus [None]
  - Therapy change [None]
  - Therapy interrupted [None]
  - Pulmonary embolism [None]
  - Pneumonia [None]
